FAERS Safety Report 5627758-8 (Version None)
Quarter: 2008Q1

REPORT INFORMATION
  Report Type: 
  Country: None (occurrence: None)
  Receive Date: 20080215
  Receipt Date: 20080212
  Transmission Date: 20080703
  Serious: Yes (Other)
  Sender: FDA-Public Use
  Company Number: A0709092A

PATIENT
  Age: 80 Year
  Sex: Female

DRUGS (6)
  1. AVANDAMET [Suspect]
     Dosage: 1TAB TWICE PER DAY
     Route: 048
     Dates: start: 20031001, end: 20061004
  2. AVANDIA [Suspect]
     Dosage: 4MG PER DAY
     Route: 048
  3. SYNTHROID [Concomitant]
  4. HYDROCHLOROTHIAZIDE [Concomitant]
  5. TRIAMTERENE [Concomitant]
  6. VYTORIN [Concomitant]

REACTIONS (18)
  - ADVERSE EVENT [None]
  - ANAEMIA [None]
  - ANOREXIA [None]
  - CHRONIC OBSTRUCTIVE PULMONARY DISEASE [None]
  - DIZZINESS [None]
  - DYSPNOEA [None]
  - FALL [None]
  - FATIGUE [None]
  - HEART RATE IRREGULAR [None]
  - LACRIMATION INCREASED [None]
  - MALAISE [None]
  - NASAL DISCOMFORT [None]
  - NASOPHARYNGITIS [None]
  - OEDEMA [None]
  - POLYPECTOMY [None]
  - RED BLOOD CELL COUNT DECREASED [None]
  - RENAL FAILURE [None]
  - WEIGHT DECREASED [None]
